FAERS Safety Report 9387994 (Version 5)
Quarter: 2014Q1

REPORT INFORMATION
  Report Type: Spontaneous
  Country: FR (occurrence: FR)
  Receive Date: 20130708
  Receipt Date: 20140107
  Transmission Date: 20141002
  Serious: Yes (Hospitalization, Disabling)
  Sender: FDA-Public Use
  Company Number: FR-VERTEX PHARMACEUTICALS INC-2013-007749

PATIENT
  Age: 73 Year
  Sex: Male

DRUGS (9)
  1. INCIVO [Suspect]
     Indication: HEPATITIS C
     Dosage: 2250 MG, QD, TABLET
     Route: 048
     Dates: start: 20130122, end: 20130410
  2. RIBAVIRIN [Suspect]
     Indication: HEPATITIS C
     Dosage: DOSAGE FORM: UNSPECIFIED
     Route: 048
     Dates: start: 20130122, end: 20130410
  3. PEGINTERFERON ALFA-2A [Suspect]
     Indication: HEPATITIS C
     Dosage: DOSAGE FORM: INJECTION
     Route: 058
     Dates: start: 20130122, end: 20130410
  4. SINTROM [Interacting]
     Indication: PRODUCT USED FOR UNKNOWN INDICATION
     Dosage: DOSAGE FORM: UNSPECIFIED
     Route: 048
  5. SINTROM [Interacting]
     Dosage: 4 MG, UNK
     Route: 048
  6. CARDENSIEL [Concomitant]
     Indication: PRODUCT USED FOR UNKNOWN INDICATION
     Dosage: 1.25 MG, QD
     Route: 048
  7. DIFFU K [Concomitant]
     Indication: HYPOKALAEMIA
     Dosage: 600 MG, QD
     Route: 048
  8. LASILIX [Concomitant]
     Indication: HYPERTENSION
     Dosage: 40 MG, QD
     Route: 048
  9. SINTROM [Concomitant]
     Indication: PRODUCT USED FOR UNKNOWN INDICATION
     Dosage: DOSAGE FORM: UNSPECIFIED
     Route: 048
     Dates: start: 201010

REACTIONS (18)
  - General physical health deterioration [Recovered/Resolved]
  - Drug interaction [Unknown]
  - Cardiac failure [None]
  - Hepatocellular injury [Recovered/Resolved]
  - Lung disorder [Recovered/Resolved]
  - Pyrexia [Unknown]
  - Cerebrovascular accident [Unknown]
  - Decubitus ulcer [Not Recovered/Not Resolved]
  - Vascular purpura [Recovered/Resolved]
  - Muscle haemorrhage [Not Recovered/Not Resolved]
  - Anaemia [Unknown]
  - Epistaxis [Unknown]
  - Overdose [Unknown]
  - Urinary retention [Unknown]
  - Confusional state [Recovered/Resolved]
  - Sinusitis [Recovered/Resolved]
  - Rash [Unknown]
  - Pruritus [Unknown]
